FAERS Safety Report 9005372 (Version 1)
Quarter: 2013Q1

REPORT INFORMATION
  Report Type: Report from Study
  Country: US (occurrence: US)
  Receive Date: 20130108
  Receipt Date: 20130108
  Transmission Date: 20140127
  Serious: No
  Sender: FDA-Public Use
  Company Number: US-VERTEX PHARMACEUTICALS INC.-2013-000250

PATIENT
  Sex: Male

DRUGS (7)
  1. VX-950 (TELAPREVIR) [Suspect]
     Indication: HEPATITIS C
     Dosage: UNK
     Route: 048
     Dates: start: 20121028
  2. RIBAVIRIN [Suspect]
     Indication: HEPATITIS C
     Dosage: UNK
  3. PEGASYS [Suspect]
     Indication: HEPATITIS C
  4. COREG [Concomitant]
  5. LASIX                              /00032601/ [Concomitant]
  6. LISINOPRIL [Concomitant]
  7. VITAMINS /90003601/ [Concomitant]
     Dosage: UNK, QD

REACTIONS (2)
  - Rash [Unknown]
  - Nausea [Unknown]
